FAERS Safety Report 10024498 (Version 1)
Quarter: 2014Q1

REPORT INFORMATION
  Report Type: Spontaneous
  Country: US (occurrence: None)
  Receive Date: 20140314
  Receipt Date: 20140314
  Transmission Date: 20141002
  Serious: Yes (Other)
  Sender: FDA-Public Use
  Company Number: 1000138339-2014-00001

PATIENT
  Sex: Female
  Weight: 58.97 kg

DRUGS (1)
  1. MEDI-PAK ANTIMICROBIAL SOAP W/ALOE [Suspect]
     Indication: ANTIBIOTIC PROPHYLAXIS
     Dosage: USED 5 TIMES IN 3 DAYS

REACTIONS (2)
  - Paraesthesia [None]
  - Feeling abnormal [None]
